FAERS Safety Report 10652764 (Version 6)
Quarter: 2015Q3

REPORT INFORMATION
  Report Type: Spontaneous
  Country: US (occurrence: US)
  Receive Date: 20141215
  Receipt Date: 20150810
  Transmission Date: 20151125
  Serious: Yes (Life-Threatening, Hospitalization, Other)
  Sender: FDA-Public Use
  Company Number: US-009507513-1412USA005247

PATIENT
  Sex: Female

DRUGS (14)
  1. ACTONEL [Suspect]
     Active Substance: RISEDRONATE SODIUM
     Indication: OSTEOPOROSIS
  2. BENICAR [Concomitant]
     Active Substance: OLMESARTAN MEDOXOMIL
     Indication: HYPERTENSION
     Dosage: UNK
     Route: 065
     Dates: start: 20030116
  3. ACTONEL [Suspect]
     Active Substance: RISEDRONATE SODIUM
     Indication: OSTEOPENIA
     Dosage: 30 MG, QW
     Route: 065
     Dates: start: 20030204, end: 20030817
  4. ALENDRONATE SODIUM. [Suspect]
     Active Substance: ALENDRONATE SODIUM
     Indication: OSTEOPOROSIS PROPHYLAXIS
  5. FOSAMAX [Suspect]
     Active Substance: ALENDRONATE SODIUM
     Indication: OSTEOPOROSIS
  6. FOSAMAX [Suspect]
     Active Substance: ALENDRONATE SODIUM
     Indication: OSTEOPOROSIS PROPHYLAXIS
  7. ALENDRONATE SODIUM. [Suspect]
     Active Substance: ALENDRONATE SODIUM
     Indication: OSTEOPENIA
     Dosage: 70 MG, QW
     Route: 048
     Dates: start: 20080401, end: 20110627
  8. ALENDRONATE SODIUM. [Suspect]
     Active Substance: ALENDRONATE SODIUM
     Indication: OSTEOPOROSIS
  9. LIPITOR [Concomitant]
     Active Substance: ATORVASTATIN CALCIUM
     Indication: BLOOD CHOLESTEROL INCREASED
     Dosage: UNK
     Route: 065
     Dates: start: 20030111
  10. CENTRUM SILVER [Concomitant]
     Active Substance: VITAMINS
     Indication: PRODUCT USED FOR UNKNOWN INDICATION
     Dosage: UNK, QD
     Route: 065
     Dates: start: 1995
  11. CALCIUM (UNSPECIFIED) [Concomitant]
     Active Substance: CALCIUM
     Indication: PRODUCT USED FOR UNKNOWN INDICATION
     Dosage: 500 MG, BID
     Route: 065
     Dates: start: 1995
  12. FOSAMAX [Suspect]
     Active Substance: ALENDRONATE SODIUM
     Indication: OSTEOPENIA
     Dosage: 70 MG, QW
     Route: 048
     Dates: start: 20030918, end: 20080211
  13. ACTONEL [Suspect]
     Active Substance: RISEDRONATE SODIUM
     Indication: OSTEOPOROSIS PROPHYLAXIS
  14. OMEGA-3 MARINE TRIGLYCERIDES [Concomitant]
     Active Substance: FISH OIL
     Indication: PRODUCT USED FOR UNKNOWN INDICATION
     Dosage: UNK, QD
     Route: 065
     Dates: start: 1995

REACTIONS (19)
  - Femur fracture [Recovering/Resolving]
  - Venous thrombosis [Unknown]
  - VIIth nerve paralysis [Unknown]
  - Surgery [Unknown]
  - Femur fracture [Unknown]
  - Glaucoma [Unknown]
  - Pleural effusion [Unknown]
  - Electrocardiogram ST-T segment abnormal [Unknown]
  - Pulmonary embolism [Unknown]
  - Syncope [Unknown]
  - Sciatic nerve injury [Unknown]
  - Gait disturbance [Unknown]
  - Retroperitoneal haemorrhage [Unknown]
  - Retroperitoneal haematoma [Unknown]
  - Urinary tract infection [Unknown]
  - Syncope [Unknown]
  - Eye laser surgery [Unknown]
  - Fluid overload [Unknown]
  - Pain in extremity [Unknown]

NARRATIVE: CASE EVENT DATE: 200405
